FAERS Safety Report 19132180 (Version 1)
Quarter: 2021Q2

REPORT INFORMATION
  Report Type: Spontaneous
  Country: FR (occurrence: FR)
  Receive Date: 20210414
  Receipt Date: 20210414
  Transmission Date: 20210717
  Serious: Yes (Other)
  Sender: FDA-Public Use
  Company Number: FR-BAUSCH-BL-2016-018649

PATIENT
  Age: 68 Year
  Sex: Female

DRUGS (2)
  1. LEVOTHYROX [Concomitant]
     Active Substance: LEVOTHYROXINE
     Indication: SUPPLEMENTATION THERAPY
  2. CARTEOL LP 1% COLLYRE ? LIB?RATION PROLONG?E [Suspect]
     Active Substance: CARTEOLOL HYDROCHLORIDE
     Indication: GLAUCOMA
     Route: 047
     Dates: start: 2010, end: 201610

REACTIONS (2)
  - Optic nerve injury [Unknown]
  - Alopecia [Not Recovered/Not Resolved]
